FAERS Safety Report 20815263 (Version 1)
Quarter: 2022Q2

REPORT INFORMATION
  Report Type: Spontaneous
  Country: US (occurrence: None)
  Receive Date: 20220511
  Receipt Date: 20220511
  Transmission Date: 20220721
  Serious: Yes (Hospitalization)
  Sender: FDA-Public Use
  Company Number: None

PATIENT
  Age: 67 Year
  Sex: Female

DRUGS (1)
  1. ARANESP [Suspect]
     Active Substance: DARBEPOETIN ALFA
     Indication: Anaemia
     Dosage: OTHER STRENGTH : 40MCG/.4ML;?FREQUENCY : WEEKLY;?
     Route: 058
     Dates: start: 2022

REACTIONS (3)
  - Full blood count decreased [None]
  - Blood potassium decreased [None]
  - Therapy interrupted [None]

NARRATIVE: CASE EVENT DATE: 20220131
